FAERS Safety Report 13660525 (Version 2)
Quarter: 2017Q3

REPORT INFORMATION
  Report Type: Spontaneous
  Country: FR (occurrence: FR)
  Receive Date: 20170616
  Receipt Date: 20170727
  Transmission Date: 20171127
  Serious: Yes (Other)
  Sender: FDA-Public Use
  Company Number: FR-PFIZER INC-2017226489

PATIENT
  Age: 49 Year
  Sex: Female

DRUGS (6)
  1. DALACINE [Suspect]
     Active Substance: CLINDAMYCIN HYDROCHLORIDE
     Dosage: 600 MG, FOUR TIMES A DAY
     Route: 041
     Dates: start: 20170514, end: 20170514
  2. ATARAX [Concomitant]
     Active Substance: HYDROXYZINE HYDROCHLORIDE
     Dosage: UNK
     Dates: start: 20170514, end: 20170518
  3. SOLUPRED /00016201/ [Concomitant]
     Active Substance: PREDNISOLONE
     Dosage: UNK
     Dates: start: 20170514, end: 20170519
  4. DALACINE [Suspect]
     Active Substance: CLINDAMYCIN HYDROCHLORIDE
     Dosage: 600 MG, FOUR TIMES A DAY
     Route: 048
     Dates: start: 20170515, end: 20170520
  5. CETIRIZINE [Concomitant]
     Active Substance: CETIRIZINE HYDROCHLORIDE
     Dosage: UNK
     Dates: start: 20170514, end: 20170520
  6. DALACINE [Suspect]
     Active Substance: CLINDAMYCIN HYDROCHLORIDE
     Dosage: 600 MG, UNK
     Route: 048
     Dates: start: 20170617, end: 20170620

REACTIONS (18)
  - Fatigue [Not Recovered/Not Resolved]
  - Nausea [Recovered/Resolved]
  - Tongue blistering [Recovered/Resolved]
  - Vulval disorder [Recovering/Resolving]
  - Food aversion [Recovering/Resolving]
  - Skin plaque [Recovered/Resolved]
  - Thermal burn [Recovering/Resolving]
  - Toxic epidermal necrolysis [Unknown]
  - Eczema [Unknown]
  - Skin depigmentation [Unknown]
  - Blister infected [Unknown]
  - Skin discolouration [Unknown]
  - Genital blister [Not Recovered/Not Resolved]
  - Burn oral cavity [Recovered/Resolved]
  - Dysgeusia [Not Recovered/Not Resolved]
  - Migraine [Not Recovered/Not Resolved]
  - Vomiting [Unknown]
  - Burn oesophageal [Recovered/Resolved]

NARRATIVE: CASE EVENT DATE: 20170515
